FAERS Safety Report 7434735-3 (Version None)
Quarter: 2011Q2

REPORT INFORMATION
  Report Type: 
  Country: None (occurrence: None)
  Receive Date: 20110415
  Receipt Date: 20110405
  Transmission Date: 20111010
  Serious: Yes (Other)
  Sender: FDA-Public Use
  Company Number: 2011SP015309

PATIENT
  Age: 52 Year
  Sex: Female

DRUGS (8)
  1. DESLORATADINE [Suspect]
     Indication: PRODUCT USED FOR UNKNOWN INDICATION
     Dosage: PO
     Route: 048
  2. METFORMIN HCL [Suspect]
     Indication: TYPE 2 DIABETES MELLITUS
     Dosage: 1000 MG;BID;PO
     Route: 048
     Dates: start: 20090101
  3. ACETYLSALICYLIC ACID SRT [Suspect]
     Indication: PRODUCT USED FOR UNKNOWN INDICATION
     Dosage: PO
     Route: 048
  4. REDUX [Suspect]
     Indication: WEIGHT CONTROL
     Dosage: PO
     Route: 048
     Dates: start: 19880101, end: 19920101
  5. ADVAIR DISKUS 100/50 [Suspect]
     Indication: PRODUCT USED FOR UNKNOWN INDICATION
     Dosage: INH
     Route: 055
  6. ZOLPIDEM TARTRATE [Suspect]
     Indication: PRODUCT USED FOR UNKNOWN INDICATION
     Dosage: PO
     Route: 048
  7. VENTOLIN [Suspect]
     Indication: PRODUCT USED FOR UNKNOWN INDICATION
     Dosage: INH
     Route: 055
  8. MEDIATOR (BENFLUOREX HYDROCHLORIDE) [Suspect]
     Indication: TYPE 2 DIABETES MELLITUS
     Dosage: 150 MG;BID;PO
     Route: 048
     Dates: start: 20050101, end: 20090101

REACTIONS (7)
  - BLOOD PRESSURE DECREASED [None]
  - AORTIC VALVE INCOMPETENCE [None]
  - MITRAL VALVE INCOMPETENCE [None]
  - AORTIC VALVE DISEASE [None]
  - MYALGIA [None]
  - CHRONIC OBSTRUCTIVE PULMONARY DISEASE [None]
  - CONDITION AGGRAVATED [None]
